FAERS Safety Report 23267487 (Version 1)
Quarter: 2023Q4

REPORT INFORMATION
  Report Type: Spontaneous
  Country: US (occurrence: None)
  Receive Date: 20231205
  Receipt Date: 20231205
  Transmission Date: 20240109
  Serious: No
  Sender: FDA-Public Use
  Company Number: None

PATIENT
  Sex: Female

DRUGS (9)
  1. XELJANZ XR [Suspect]
     Active Substance: TOFACITINIB CITRATE
     Indication: Rheumatoid arthritis
     Dosage: FREQUENCY : DAILY;?
     Route: 048
     Dates: start: 20220602
  2. MOUNJARO [Concomitant]
     Active Substance: TIRZEPATIDE
  3. HERBALS\TURMERIC [Concomitant]
     Active Substance: HERBALS\TURMERIC
  4. METHOTREXATE [Concomitant]
     Active Substance: METHOTREXATE
  5. BACLOFEN [Concomitant]
     Active Substance: BACLOFEN
  6. VITAMINS [Concomitant]
     Active Substance: VITAMINS
  7. TYLENOL 8 HR ARTHRITIS PAIN [Concomitant]
     Active Substance: ACETAMINOPHEN
  8. FOLIC ACID [Concomitant]
     Active Substance: FOLIC ACID
  9. PREDNISONE [Concomitant]
     Active Substance: PREDNISONE

REACTIONS (1)
  - Drug ineffective [None]
